FAERS Safety Report 15784531 (Version 2)
Quarter: 2019Q1

REPORT INFORMATION
  Report Type: Report from Study
  Country: US (occurrence: US)
  Receive Date: 20190103
  Receipt Date: 20190107
  Transmission Date: 20190417
  Serious: Yes (Death, Life-Threatening, Hospitalization, Other)
  Sender: FDA-Public Use
  Company Number: US-BRISTOL-MYERS SQUIBB COMPANY-BMS-2018-117051

PATIENT
  Age: 60 Year
  Sex: Male
  Weight: 92.2 kg

DRUGS (5)
  1. FLUDARABINE [Concomitant]
     Active Substance: FLUDARABINE PHOSPHATE
     Indication: PRODUCT USED FOR UNKNOWN INDICATION
     Dosage: 67 MG, UNK
     Route: 065
     Dates: start: 20181128, end: 20181130
  2. RIBAVIRIN. [Concomitant]
     Active Substance: RIBAVIRIN
     Indication: PRODUCT USED FOR UNKNOWN INDICATION
     Dosage: 1 DF, BID
     Route: 065
     Dates: start: 20181209
  3. CYTOXAN [Concomitant]
     Active Substance: CYCLOPHOSPHAMIDE
     Indication: PRODUCT USED FOR UNKNOWN INDICATION
     Dosage: 895 MG, UNK
     Route: 065
     Dates: start: 20181128, end: 20181130
  4. ELOTUZUMAB. [Suspect]
     Active Substance: ELOTUZUMAB
     Indication: PLASMA CELL MYELOMA
     Dosage: 945 MG, UNK
     Route: 042
     Dates: start: 20181121, end: 20181214
  5. INTERLEUKIN-2 [Concomitant]
     Active Substance: ALDESLEUKIN
     Indication: PRODUCT USED FOR UNKNOWN INDICATION
     Dosage: UNK
     Route: 065
     Dates: start: 20181203, end: 20181207

REACTIONS (7)
  - Thrombocytopenia [Unknown]
  - Multiple organ dysfunction syndrome [Fatal]
  - Cerebral haemorrhage [Unknown]
  - Respiratory syncytial virus infection [Unknown]
  - Pneumonia bacterial [Fatal]
  - Sepsis [Fatal]
  - Neutropenia [Unknown]

NARRATIVE: CASE EVENT DATE: 20181209
